FAERS Safety Report 8566457-X (Version None)
Quarter: 2012Q3

REPORT INFORMATION
  Report Type: 
  Country: None (occurrence: None)
  Receive Date: 20120803
  Receipt Date: 20111216
  Transmission Date: 20120928
  Serious: No
  Sender: FDA-Public Use
  Company Number: US-ABBOTT-11P-163-0867162-00

PATIENT
  Sex: Male
  Weight: 108.96 kg

DRUGS (22)
  1. RISPERDAL [Concomitant]
     Indication: BLOOD PRESSURE INCREASED
  2. SPIRONOLACTONE [Concomitant]
     Indication: PRODUCT USED FOR UNKNOWN INDICATION
  3. NIASPAN [Suspect]
     Dosage: TAKES TWO 750MG TABLETS.
     Dates: start: 20111001, end: 20111201
  4. NIASPAN [Suspect]
     Dosage: TAKES TWO 500MG TABLETS.
  5. SIMVASTATIN [Concomitant]
     Indication: PRODUCT USED FOR UNKNOWN INDICATION
     Dosage: AT HS
  6. HUMALOG [Concomitant]
     Indication: DIABETES MELLITUS
     Dosage: PER SLIDING SCALE
  7. NIASPAN [Suspect]
  8. LASIX [Concomitant]
     Indication: FLUID RETENTION
  9. PLAVIX [Concomitant]
     Indication: PRODUCT USED FOR UNKNOWN INDICATION
  10. FLOMAX [Concomitant]
     Indication: PRODUCT USED FOR UNKNOWN INDICATION
  11. LYRICA [Concomitant]
     Indication: PRODUCT USED FOR UNKNOWN INDICATION
  12. NIASPAN [Suspect]
     Indication: BLOOD CHOLESTEROL INCREASED
     Dates: start: 20111001, end: 20111001
  13. NIASPAN [Suspect]
  14. CHLORTHALIDONE [Concomitant]
     Indication: PRODUCT USED FOR UNKNOWN INDICATION
  15. LANTUS [Concomitant]
     Indication: DIABETES MELLITUS
     Dosage: AT HS
  16. NIASPAN [Suspect]
     Dosage: TAKES THREE 500 MG TABLETS
     Dates: start: 20111001
  17. POTASSIUM [Concomitant]
     Indication: PRODUCT USED FOR UNKNOWN INDICATION
  18. BYSTOLIC [Concomitant]
     Indication: HYPERTENSION
  19. PAXIL [Concomitant]
     Indication: PRODUCT USED FOR UNKNOWN INDICATION
  20. MOBIC [Concomitant]
     Indication: GOUT
  21. BYSTOLIC [Concomitant]
     Indication: BLOOD PRESSURE INCREASED
  22. ASPIRIN [Concomitant]
     Indication: PRODUCT USED FOR UNKNOWN INDICATION

REACTIONS (1)
  - DIARRHOEA [None]
